FAERS Safety Report 14851167 (Version 1)
Quarter: 2018Q2

REPORT INFORMATION
  Report Type: Spontaneous
  Country: US (occurrence: US)
  Receive Date: 20180507
  Receipt Date: 20180507
  Transmission Date: 20180711
  Serious: No
  Sender: FDA-Public Use
  Company Number: US-CELGENEUS-USA-20180500470

PATIENT
  Sex: Male

DRUGS (25)
  1. ASPIRIN. [Concomitant]
     Active Substance: ASPIRIN
     Indication: PRODUCT USED FOR UNKNOWN INDICATION
     Route: 048
     Dates: start: 20170925
  2. VALSART/HCTZ [Concomitant]
     Indication: PRODUCT USED FOR UNKNOWN INDICATION
     Dosage: 320-25 MG
     Route: 048
     Dates: start: 20171124
  3. TROKENDI XR [Concomitant]
     Active Substance: TOPIRAMATE
     Indication: PRODUCT USED FOR UNKNOWN INDICATION
     Route: 048
     Dates: start: 20171114
  4. TROKENDI XR [Concomitant]
     Active Substance: TOPIRAMATE
     Route: 048
     Dates: start: 20171216
  5. ENSTILAR AER [Concomitant]
     Indication: PRODUCT USED FOR UNKNOWN INDICATION
     Route: 065
     Dates: start: 20170816
  6. CENTRUM [Concomitant]
     Active Substance: VITAMINS
     Indication: PRODUCT USED FOR UNKNOWN INDICATION
     Dosage: CHW SILVER
     Route: 065
     Dates: start: 20170925
  7. POT CL MICRO [Concomitant]
     Route: 048
     Dates: start: 20171112
  8. TROKENDI XR [Concomitant]
     Active Substance: TOPIRAMATE
     Route: 048
     Dates: start: 20180329
  9. PHENTERMINE. [Concomitant]
     Active Substance: PHENTERMINE
     Indication: PRODUCT USED FOR UNKNOWN INDICATION
     Route: 048
     Dates: start: 20171114
  10. OTEZLA [Suspect]
     Active Substance: APREMILAST
     Indication: PSORIASIS
     Dosage: 30 MILLIGRAM
     Route: 048
     Dates: start: 20171025
  11. LEVOTHYROXIN [Concomitant]
     Active Substance: LEVOTHYROXINE
     Route: 048
     Dates: start: 20180217
  12. POT CL MICRO [Concomitant]
     Indication: PRODUCT USED FOR UNKNOWN INDICATION
     Route: 048
     Dates: start: 20170915
  13. AIRBORNE [Concomitant]
     Active Substance: HERBALS\MINERALS\VITAMINS
     Indication: PRODUCT USED FOR UNKNOWN INDICATION
     Route: 048
     Dates: start: 20170925
  14. SCHIFF MOVE FREE [Concomitant]
     Active Substance: CHONDROITIN SULFATE A\GLUCOSAMINE
     Indication: PRODUCT USED FOR UNKNOWN INDICATION
     Route: 048
     Dates: start: 20170925
  15. KRILL OIL [Concomitant]
     Active Substance: DIETARY SUPPLEMENT
     Indication: PRODUCT USED FOR UNKNOWN INDICATION
     Route: 048
     Dates: start: 20170925
  16. LEVOTHYROXIN [Concomitant]
     Active Substance: LEVOTHYROXINE
     Indication: PRODUCT USED FOR UNKNOWN INDICATION
     Route: 048
     Dates: start: 20171124
  17. TROKENDI XR [Concomitant]
     Active Substance: TOPIRAMATE
     Route: 048
     Dates: start: 20180215
  18. ENSTILAR AER [Concomitant]
     Route: 065
     Dates: start: 20180216
  19. OTEZLA [Suspect]
     Active Substance: APREMILAST
     Route: 048
     Dates: start: 20180418
  20. VALSART/HCTZ [Concomitant]
     Dosage: 320-25 MG
     Route: 048
     Dates: start: 20171229
  21. TROKENDI XR [Concomitant]
     Active Substance: TOPIRAMATE
     Route: 048
     Dates: start: 20180418
  22. ENSTILAR AER [Concomitant]
     Route: 065
     Dates: start: 20180418
  23. VALSART/HCTZ [Concomitant]
     Dosage: 320-25 MG
     Route: 048
     Dates: start: 20180217
  24. POT CL MICRO [Concomitant]
     Route: 048
     Dates: start: 20180215
  25. PHENTERMINE. [Concomitant]
     Active Substance: PHENTERMINE
     Route: 048
     Dates: start: 20180215

REACTIONS (1)
  - Psoriasis [Not Recovered/Not Resolved]
